FAERS Safety Report 19585957 (Version 1)
Quarter: 2021Q3

REPORT INFORMATION
  Report Type: Spontaneous
  Country: CL (occurrence: CL)
  Receive Date: 20210720
  Receipt Date: 20210720
  Transmission Date: 20211014
  Serious: Yes (Other)
  Sender: FDA-Public Use
  Company Number: CL-PFIZER INC-2021854104

PATIENT
  Sex: Male

DRUGS (1)
  1. AMPARAX [Suspect]
     Active Substance: LORAZEPAM

REACTIONS (2)
  - Hypertension [Unknown]
  - Cerebrovascular accident [Unknown]
